FAERS Safety Report 9339347 (Version 1)
Quarter: 2013Q2

REPORT INFORMATION
  Report Type: Report from Study
  Country: US (occurrence: US)
  Receive Date: 20130610
  Receipt Date: 20130610
  Transmission Date: 20140414
  Serious: Yes (Hospitalization)
  Sender: FDA-Public Use
  Company Number: US-PURDUE-USA-2013-0103034

PATIENT
  Age: 46 Year
  Sex: Female

DRUGS (1)
  1. OXYCONTIN (NDA 22-272) [Suspect]
     Indication: PRODUCT USED FOR UNKNOWN INDICATION
     Dosage: 60 MG, TID
     Route: 048

REACTIONS (4)
  - Blood glucose increased [Recovered/Resolved]
  - Chest discomfort [Unknown]
  - Memory impairment [Unknown]
  - Unevaluable event [Unknown]
